FAERS Safety Report 16366785 (Version 1)
Quarter: 2019Q2

REPORT INFORMATION
  Report Type: Spontaneous
  Country: US (occurrence: US)
  Receive Date: 20190422
  Receipt Date: 20190422
  Transmission Date: 20190711
  Serious: No
  Sender: FDA-Public Use
  Company Number: None

PATIENT
  Age: 33 Year
  Sex: Female

DRUGS (9)
  1. IRON [Concomitant]
     Active Substance: IRON
  2. CALCIUM [Concomitant]
     Active Substance: CALCIUM
  3. OCALIVA [Suspect]
     Active Substance: OBETICHOLIC ACID
     Indication: PRIMARY BILIARY CHOLANGITIS
     Route: 048
     Dates: start: 20171205
  4. FEROSUL [Concomitant]
  5. URSODIOL. [Concomitant]
     Active Substance: URSODIOL
  6. BENZTROPINE. [Concomitant]
     Active Substance: BENZTROPINE
  7. HALOPERIDOL. [Concomitant]
     Active Substance: HALOPERIDOL
  8. TENOFOVIR [Concomitant]
     Active Substance: TENOFOVIR
  9. MONONESSA [Concomitant]
     Active Substance: ETHINYL ESTRADIOL\NORGESTIMATE

REACTIONS (1)
  - Pruritus [None]
